FAERS Safety Report 5731990-2 (Version None)
Quarter: 2008Q2

REPORT INFORMATION
  Report Type: 
  Country: None (occurrence: None)
  Receive Date: 20080508
  Receipt Date: 20080502
  Transmission Date: 20081010
  Serious: Yes (Hospitalization)
  Sender: FDA-Public Use
  Company Number: US-JNJFOC-20080500844

PATIENT
  Sex: Female
  Weight: 79.38 kg

DRUGS (9)
  1. LEVAQUIN [Suspect]
     Indication: URINARY TRACT INFECTION
     Route: 042
  2. LEVAQUIN [Suspect]
     Indication: KIDNEY INFECTION
     Route: 042
  3. LEVAQUIN [Suspect]
     Route: 048
  4. LEVAQUIN [Suspect]
     Route: 048
  5. VERAPAMIL [Concomitant]
     Indication: BLOOD PRESSURE
  6. DYAZIDE [Concomitant]
     Indication: DIURETIC THERAPY
  7. FEMAKA [Concomitant]
     Indication: BREAST CANCER
  8. ASPIRIN [Concomitant]
     Indication: ANTICOAGULANT THERAPY
  9. CALCIUM [Concomitant]
     Indication: NUTRITIONAL SUPPORT

REACTIONS (3)
  - ATRIOVENTRICULAR BLOCK [None]
  - FALL [None]
  - TENDON DISORDER [None]
